FAERS Safety Report 7935423 (Version 3)
Quarter: 2014Q1

REPORT INFORMATION
  Report Type: Report from Study
  Country: BR (occurrence: BR)
  Receive Date: 20110509
  Receipt Date: 20140303
  Transmission Date: 20141002
  Serious: Yes (Hospitalization, Other)
  Sender: FDA-Public Use
  Company Number: BR-ROCHE-774833

PATIENT
  Sex: Male
  Weight: 63 kg

DRUGS (9)
  1. MABTHERA [Suspect]
     Indication: ANKYLOSING SPONDYLITIS
     Route: 042
     Dates: start: 20100601, end: 20120516
  2. ROFERON-A [Suspect]
     Indication: HEPATITIS C
     Route: 065
  3. PRELONE [Concomitant]
     Route: 065
  4. CHONDROITIN SULFATE/GLUCOSAMINE [Concomitant]
  5. OMEPRAZOLE [Concomitant]
  6. CALTRATE [Concomitant]
     Route: 065
  7. ALENDRONATE [Concomitant]
  8. PANTOPRAZOLE [Concomitant]
  9. DOMPERIDONE [Concomitant]

REACTIONS (4)
  - Viral load increased [Not Recovered/Not Resolved]
  - Therapeutic response decreased [Recovered/Resolved]
  - Meningitis [Recovered/Resolved]
  - Disease progression [Not Recovered/Not Resolved]
